FAERS Safety Report 8320292-6 (Version None)
Quarter: 2012Q2

REPORT INFORMATION
  Report Type: 
  Country: None (occurrence: None)
  Receive Date: 20120426
  Receipt Date: 20120426
  Transmission Date: 20120825
  Serious: No
  Sender: FDA-Public Use
  Company Number: None

PATIENT
  Age: 57 Year
  Sex: Female
  Weight: 65.7716 kg

DRUGS (1)
  1. ZYMAR [Suspect]
     Indication: EYE INFECTION
     Dosage: 0.3% 4X DAILY EYE DROPS
     Dates: start: 20120408

REACTIONS (2)
  - DISCOMFORT [None]
  - CHEST DISCOMFORT [None]
